FAERS Safety Report 5230999-5 (Version None)
Quarter: 2007Q1

REPORT INFORMATION
  Report Type: 
  Country: None (occurrence: None)
  Receive Date: 20070206
  Receipt Date: 20070125
  Transmission Date: 20070707
  Serious: Yes (Hospitalization)
  Sender: FDA-Public Use
  Company Number: TR-NOVOPROD-253510

PATIENT
  Age: 38 Year

DRUGS (1)
  1. ACTIVELLE [Suspect]
     Indication: MENOPAUSE
     Dosage: 1 TAB, UNK
     Dates: start: 20060302, end: 20060503

REACTIONS (2)
  - ABORTION SPONTANEOUS [None]
  - PREGNANCY [None]
